FAERS Safety Report 8580172 (Version 3)
Quarter: 2018Q4

REPORT INFORMATION
  Report Type: Spontaneous
  Country: FR (occurrence: FR)
  Receive Date: 20120525
  Receipt Date: 20181101
  Transmission Date: 20190205
  Serious: Yes (Hospitalization)
  Sender: FDA-Public Use
  Company Number: FR-SANOFI-AVENTIS-2012SA035644

PATIENT
  Age: 53 Year
  Sex: Male
  Weight: 95 kg

DRUGS (11)
  1. ORELOX [Concomitant]
     Active Substance: CEFPODOXIME
     Dosage: UNK
     Route: 048
     Dates: start: 20120216
  2. PREVISCAN [FLUINDIONE] [Concomitant]
     Active Substance: FLUINDIONE
     Indication: CARDIAC DISORDER
     Dosage: UNK
     Route: 048
     Dates: start: 2011
  3. PERINDOPRIL [Concomitant]
     Active Substance: PERINDOPRIL
     Indication: CARDIAC DISORDER
     Dosage: UNK
     Route: 048
     Dates: start: 2011
  4. TAHOR [Concomitant]
     Active Substance: ATORVASTATIN CALCIUM
     Indication: CARDIAC DISORDER
     Dosage: UNK
     Route: 048
     Dates: start: 2011
  5. PARACETAMOL [Concomitant]
     Active Substance: ACETAMINOPHEN
     Dosage: UNK
     Route: 048
     Dates: start: 20120216
  6. PHOLCODINE [Concomitant]
     Active Substance: PHOLCODINE
     Dosage: UNK
     Dates: start: 20120216
  7. BISOPROLOL FUMARATE. [Suspect]
     Active Substance: BISOPROLOL FUMARATE
     Indication: CARDIAC DISORDER
     Dosage: UNK UNK,UNK
     Route: 048
     Dates: start: 2011
  8. PANOS [Concomitant]
     Active Substance: TETRAZEPAM
     Dosage: 50 MG,UNK
     Route: 048
     Dates: start: 20120216
  9. LASILIX [Suspect]
     Active Substance: FUROSEMIDE
     Indication: CARDIAC DISORDER
     Dosage: UNK UNK,UNK
     Route: 065
     Dates: start: 2011
  10. KALEORID [Concomitant]
     Active Substance: POTASSIUM CHLORIDE
     Indication: CARDIAC DISORDER
     Dosage: UNK
     Route: 048
     Dates: start: 2011
  11. CORDARONE [Suspect]
     Active Substance: AMIODARONE HYDROCHLORIDE
     Indication: CARDIAC DISORDER
     Dosage: UNK UNK,UNK
     Route: 048
     Dates: start: 2011

REACTIONS (2)
  - Arrhythmia [Recovered/Resolved]
  - Syncope [Recovered/Resolved]

NARRATIVE: CASE EVENT DATE: 20120301
